FAERS Safety Report 5036282-5 (Version None)
Quarter: 2006Q2

REPORT INFORMATION
  Report Type: 
  Country: None (occurrence: None)
  Receive Date: 20060601
  Receipt Date: 20060123
  Transmission Date: 20061013
  Serious: No
  Sender: FDA-Public Use
  Company Number: US200511000294

PATIENT
  Age: 60 Year
  Sex: Female

DRUGS (12)
  1. CYMBALTA [Suspect]
     Indication: BACK PAIN
     Dosage: SEE IMAGE
     Route: 048
     Dates: start: 20050701, end: 20050701
  2. CYMBALTA [Suspect]
     Indication: BACK PAIN
     Dosage: SEE IMAGE
     Route: 048
     Dates: start: 20050701, end: 20050701
  3. NEURONTIN [Concomitant]
  4. WELLBUTRIN [Concomitant]
  5. CLONOPIN [Concomitant]
  6. SOMA [Concomitant]
  7. TENORMIN /NEZ/ (ATENOLOL) [Concomitant]
  8. VALSARTAN [Concomitant]
  9. LEVOXYL [Concomitant]
  10. LIPITOR [Concomitant]
  11. ACTOS /USA/ (PIOGLITAZONE HYDROCHLORIDE) [Concomitant]
  12. VICODIN [Concomitant]

REACTIONS (1)
  - DIABETES MELLITUS [None]
